FAERS Safety Report 8190004-8 (Version None)
Quarter: 2012Q1

REPORT INFORMATION
  Report Type: 
  Country: None (occurrence: None)
  Receive Date: 20120307
  Receipt Date: 20120228
  Transmission Date: 20120608
  Serious: Yes (Other)
  Sender: FDA-Public Use
  Company Number: US-JNJFOC-20120301031

PATIENT
  Sex: Male

DRUGS (3)
  1. HYDROCORTISONE [Suspect]
     Indication: PROSTATE CANCER METASTATIC
     Route: 065
  2. GONADOTROPIN-RELEASING HORMONE AGONIST [Concomitant]
     Route: 065
  3. KETOCONAZOLE [Suspect]
     Indication: PROSTATE CANCER METASTATIC
     Route: 048

REACTIONS (12)
  - FATIGUE [None]
  - VOMITING [None]
  - MUCOSAL INFLAMMATION [None]
  - NAUSEA [None]
  - DYSGEUSIA [None]
  - DIZZINESS [None]
  - RASH [None]
  - HEPATOTOXICITY [None]
  - ABDOMINAL PAIN [None]
  - DIARRHOEA [None]
  - DECREASED APPETITE [None]
  - FLATULENCE [None]
